FAERS Safety Report 23159251 (Version 2)
Quarter: 2023Q4

REPORT INFORMATION
  Report Type: Spontaneous
  Country: US (occurrence: US)
  Receive Date: 20231108
  Receipt Date: 20231120
  Transmission Date: 20240110
  Serious: Yes (Other)
  Sender: FDA-Public Use
  Company Number: US-009507513-2311USA000502

PATIENT
  Sex: Female

DRUGS (11)
  1. JANUMET XR [Suspect]
     Active Substance: METFORMIN HYDROCHLORIDE\SITAGLIPTIN PHOSPHATE
     Indication: Type 2 diabetes mellitus
     Dosage: STRENGTH: 50/1000 (UNITS NOT REPORTED)
     Route: 048
  2. METFORMIN [Suspect]
     Active Substance: METFORMIN HYDROCHLORIDE
     Indication: Type 2 diabetes mellitus
     Dosage: UNK
  3. AMBIEN [Concomitant]
     Active Substance: ZOLPIDEM TARTRATE
  4. BACLOFEN [Concomitant]
     Active Substance: BACLOFEN
  5. CLONIDINE [Concomitant]
     Active Substance: CLONIDINE
  6. CYMBALTA [Concomitant]
     Active Substance: DULOXETINE HYDROCHLORIDE
  7. LORAZEPAM [Concomitant]
     Active Substance: LORAZEPAM
  8. LOSARTAN [Concomitant]
     Active Substance: LOSARTAN
  9. NORVASC [Concomitant]
     Active Substance: AMLODIPINE BESYLATE
  10. PRAVASTATIN [Concomitant]
     Active Substance: PRAVASTATIN
  11. PREGABALIN [Concomitant]
     Active Substance: PREGABALIN

REACTIONS (5)
  - Diabetes mellitus inadequate control [Unknown]
  - Blood glucose increased [Unknown]
  - Product dose omission issue [Unknown]
  - Product use issue [Unknown]
  - Inability to afford medication [Unknown]
